FAERS Safety Report 24953055 (Version 1)
Quarter: 2025Q1

REPORT INFORMATION
  Report Type: Spontaneous
  Country: US (occurrence: US)
  Receive Date: 20250211
  Receipt Date: 20250211
  Transmission Date: 20250409
  Serious: Yes (Life-Threatening, Hospitalization, Other)
  Sender: Norvium Bioscience
  Company Number: US-Norvium Bioscience LLC-079871

PATIENT
  Age: 36 Year
  Sex: Female
  Weight: 0 kg

DRUGS (1)
  1. SERTRALINE HYDROCHLORIDE [Suspect]
     Active Substance: SERTRALINE HYDROCHLORIDE
     Indication: Depression

REACTIONS (4)
  - Arrhythmic storm [Recovered/Resolved]
  - Status epilepticus [Recovered/Resolved]
  - Suicidal ideation [Unknown]
  - Overdose [Unknown]
